FAERS Safety Report 12566233 (Version 3)
Quarter: 2016Q4

REPORT INFORMATION
  Report Type: Spontaneous
  Country: US (occurrence: US)
  Receive Date: 20160718
  Receipt Date: 20161207
  Transmission Date: 20170207
  Serious: No
  Sender: FDA-Public Use
  Company Number: US-INCYTE CORPORATION-2016IN004167

PATIENT
  Age: 75 Year
  Sex: Female
  Weight: 56 kg

DRUGS (6)
  1. HYDREA [Concomitant]
     Active Substance: HYDROXYUREA
     Indication: PRODUCT USED FOR UNKNOWN INDICATION
  2. JAKAFI [Suspect]
     Active Substance: RUXOLITINIB
     Dosage: 10 MG, QD
     Route: 048
     Dates: start: 20150209
  3. JAKAFI [Suspect]
     Active Substance: RUXOLITINIB
     Indication: THROMBOCYTOPENIA
     Dosage: 10 MG, BID
     Route: 048
  4. JAKAFI [Suspect]
     Active Substance: RUXOLITINIB
     Dosage: 10 MG, BID
     Route: 048
  5. SOTALOL. [Concomitant]
     Active Substance: SOTALOL
     Indication: PRODUCT USED FOR UNKNOWN INDICATION
  6. OXYIR [Concomitant]
     Active Substance: OXYCODONE HYDROCHLORIDE
     Indication: PRODUCT USED FOR UNKNOWN INDICATION

REACTIONS (12)
  - Skin lesion [Recovering/Resolving]
  - Rash pruritic [Unknown]
  - Eye pruritus [Unknown]
  - Erythema [Not Recovered/Not Resolved]
  - Eyelids pruritus [Unknown]
  - Eye haemorrhage [Unknown]
  - Acne [Not Recovered/Not Resolved]
  - Skin sensitisation [Unknown]
  - Eyelid pain [Unknown]
  - Vitreous floaters [Not Recovered/Not Resolved]
  - Rash maculo-papular [Unknown]
  - Off label use [Unknown]

NARRATIVE: CASE EVENT DATE: 20150209
